FAERS Safety Report 8842455 (Version 1)
Quarter: 2012Q4

REPORT INFORMATION
  Report Type: Spontaneous
  Country: US (occurrence: None)
  Receive Date: 20121015
  Receipt Date: 20121015
  Transmission Date: 20130627
  Serious: Yes (Life-Threatening, Hospitalization)
  Sender: FDA-Public Use
  Company Number: None

PATIENT
  Age: 58 Year
  Sex: Male
  Weight: 72.58 kg

DRUGS (1)
  1. RELISTOR [Suspect]
     Dosage: 1 syringe of 12mg/0.6mL vial
every 2 days
     Route: 058
     Dates: start: 20120627, end: 20121012

REACTIONS (1)
  - Pancreatic disorder [None]
